FAERS Safety Report 8402520-1 (Version None)
Quarter: 2012Q2

REPORT INFORMATION
  Report Type: 
  Country: None (occurrence: None)
  Receive Date: 20120601
  Receipt Date: 20120529
  Transmission Date: 20120825
  Serious: Yes (Other)
  Sender: FDA-Public Use
  Company Number: PHEH2012US009958

PATIENT
  Sex: Male

DRUGS (4)
  1. DIOVAN [Suspect]
     Indication: HYPERTENSION
     Dosage: 1 DF (80 MG) DAILY
     Route: 048
  2. CRESTOR [Concomitant]
     Indication: BLOOD CHOLESTEROL
     Dosage: 10 MG, QW
     Route: 048
  3. DIOVAN [Suspect]
     Dosage: 0.5 DF (160MG) DAILY
  4. REFRESH TEARS LUBRICANT [Concomitant]
     Indication: DRY EYE
     Dosage: 1 DRP, PRN

REACTIONS (12)
  - ECZEMA [None]
  - WRONG TECHNIQUE IN DRUG USAGE PROCESS [None]
  - THROAT TIGHTNESS [None]
  - DRY EYE [None]
  - HYPERTENSION [None]
  - PHARYNGEAL OEDEMA [None]
  - DYSPHAGIA [None]
  - TREATMENT NONCOMPLIANCE [None]
  - COUGH [None]
  - CEREBROVASCULAR ACCIDENT [None]
  - DYSPNOEA [None]
  - INSOMNIA [None]
